FAERS Safety Report 24013412 (Version 2)
Quarter: 2024Q3

REPORT INFORMATION
  Report Type: Other
  Country: DE (occurrence: DE)
  Receive Date: 20240626
  Receipt Date: 20240728
  Transmission Date: 20241016
  Serious: Yes (Other)
  Sender: LUPIN
  Company Number: DE-EMBRYOTOX-202309125

PATIENT

DRUGS (7)
  1. QUETIAPINE FUMARATE [Suspect]
     Active Substance: QUETIAPINE FUMARATE
     Indication: Psychotic disorder
     Dosage: 300 MG, QD ( 200 MG RETARDED AND 100 MG UNRETARDED)
     Route: 048
     Dates: start: 20230330, end: 20231228
  2. PROTAPHANE [Concomitant]
     Active Substance: INSULIN HUMAN
     Indication: Gestational diabetes
     Dosage: 16 INTERNATIONAL UNIT, QD (16 (IE/D )/ 8-0-0-8 IU/D 2 SEPARATED DOSES)
     Route: 058
     Dates: start: 20231014, end: 20231228
  3. CODEINE [Concomitant]
     Active Substance: CODEINE
     Indication: Cough
     Dosage: 10 GTT DROPS, QD (10 DROPS AT NIGHT, MG UNKNOWN)
     Route: 048
     Dates: start: 20231102, end: 20231110
  4. METHYLDOPA [Concomitant]
     Active Substance: METHYLDOPA
     Indication: Hypertension
     Dosage: 2 DOSAGE FORM, QD (STARTED IN THE COURSE OF PREGNANCY, 2 TABLETS/DAY, NO DETAILS KNOWN)
     Route: 048
  5. ACTRAPID [Concomitant]
     Active Substance: INSULIN HUMAN
     Indication: Gestational diabetes
     Dosage: 20 INTERNATIONAL UNIT, QD (20 (IE/D )/ 8-6-6 IU/D)
     Route: 058
     Dates: start: 20231014, end: 20231228
  6. PAROXETINE HYDROCHLORIDE [Concomitant]
     Active Substance: PAROXETINE HYDROCHLORIDE\PAROXETINE HYDROCHLORIDE ANHYDROUS
     Indication: Psychotic disorder
     Dosage: UNK, 80 (MG/D )/ DOSAGE UNCLEAR! 40 OR 80 MG/D
     Route: 048
     Dates: start: 20230330, end: 20231228
  7. METOPROLOL SUCCINATE [Concomitant]
     Active Substance: METOPROLOL SUCCINATE
     Indication: Hypertension
     Dosage: 23.75 MG, QD 23.75 (MG/D )
     Route: 048
     Dates: start: 20230330, end: 20231228

REACTIONS (2)
  - Gestational diabetes [Recovered/Resolved]
  - Exposure during pregnancy [Unknown]
